FAERS Safety Report 7339103-0 (Version None)
Quarter: 2011Q1

REPORT INFORMATION
  Report Type: 
  Country: None (occurrence: None)
  Receive Date: 20110228
  Receipt Date: 20110217
  Transmission Date: 20110831
  Serious: Yes (Other)
  Sender: FDA-Public Use
  Company Number: 023962

PATIENT
  Sex: Female
  Weight: 50 kg

DRUGS (6)
  1. METHYLPREDNISOLONE [Concomitant]
  2. ISONICID [Concomitant]
  3. LANSOPRAZOLE [Concomitant]
  4. CERTOLIZUMAB PEGOL (CDP870) [Suspect]
     Indication: CROHN'S DISEASE
     Dosage: SEE IMAGE
     Route: 058
     Dates: start: 20040901, end: 20041221
  5. CERTOLIZUMAB PEGOL (CDP870) [Suspect]
     Indication: CROHN'S DISEASE
     Dosage: SEE IMAGE
     Route: 058
     Dates: start: 20040707, end: 20040804
  6. CERTOLIZUMAB PEGOL (CDP870) [Suspect]
     Indication: CROHN'S DISEASE
     Dosage: SEE IMAGE
     Route: 058
     Dates: start: 20050106, end: 20101117

REACTIONS (2)
  - SKIN CANCER [None]
  - BASAL CELL CARCINOMA [None]
